FAERS Safety Report 9148056 (Version 3)
Quarter: 2013Q3

REPORT INFORMATION
  Report Type: Spontaneous
  Country: US (occurrence: US)
  Receive Date: 20130308
  Receipt Date: 20130705
  Transmission Date: 20140515
  Serious: Yes (Hospitalization, Other)
  Sender: FDA-Public Use
  Company Number: US-009507513-1303USA002141

PATIENT
  Age: 76 Year
  Sex: Male
  Weight: 82.54 kg

DRUGS (6)
  1. JANUVIA [Suspect]
     Indication: DIABETES MELLITUS
     Dosage: 100 MG, QD
     Route: 048
     Dates: start: 20080107, end: 20130203
  2. BENICAR HCT [Concomitant]
  3. LIPITOR [Concomitant]
     Dosage: 20 MG DAILY
  4. AMLODIPINE [Concomitant]
     Dosage: 5 MG DAILY
  5. METOPROLOL [Concomitant]
  6. PANTOPRAZOLE [Concomitant]
     Dosage: 40 MG

REACTIONS (4)
  - Pancreatitis acute [Recovered/Resolved]
  - Constipation [Recovering/Resolving]
  - Prostatomegaly [Unknown]
  - Prostatic specific antigen increased [Unknown]
